FAERS Safety Report 6401626-6 (Version None)
Quarter: 2009Q4

REPORT INFORMATION
  Report Type: 
  Country: None (occurrence: None)
  Receive Date: 20091015
  Receipt Date: 20091003
  Transmission Date: 20100525
  Serious: Yes (Other)
  Sender: FDA-Public Use
  Company Number: BR-PFIZER INC-2009190325

PATIENT

DRUGS (2)
  1. GEODON [Suspect]
     Indication: SCHIZOPHRENIA
     Dosage: 80 MG, 1X/DAY
     Dates: start: 20050101
  2. FONERGIN [Concomitant]
     Indication: PHARYNGITIS
     Dosage: UNK

REACTIONS (10)
  - BLOOD PRESSURE DECREASED [None]
  - DIZZINESS [None]
  - DRUG INEFFECTIVE [None]
  - INSOMNIA [None]
  - MALAISE [None]
  - MEDICATION ERROR [None]
  - NAUSEA [None]
  - PHARYNGITIS [None]
  - SALIVARY HYPERSECRETION [None]
  - SCHIZOPHRENIA [None]
